FAERS Safety Report 15353233 (Version 1)
Quarter: 2018Q3

REPORT INFORMATION
  Report Type: Spontaneous
  Country: US (occurrence: US)
  Receive Date: 20180905
  Receipt Date: 20180905
  Transmission Date: 20181010
  Serious: No
  Sender: FDA-Public Use
  Company Number: US-SHIRE-US201833310

PATIENT
  Age: 74 Year
  Sex: Male
  Weight: 63.49 kg

DRUGS (4)
  1. AMLODIPINE [Concomitant]
     Active Substance: AMLODIPINE BESYLATE
     Indication: BLOOD PRESSURE MEASUREMENT
  2. LOSARTAN. [Concomitant]
     Active Substance: LOSARTAN
     Indication: BLOOD PRESSURE MEASUREMENT
  3. XIIDRA [Suspect]
     Active Substance: LIFITEGRAST
     Indication: DRY EYE
     Dosage: 1 GTT, 2X/DAY:BID
     Route: 047
     Dates: start: 20180621, end: 20180621
  4. ASPIRIN. [Concomitant]
     Active Substance: ASPIRIN
     Indication: BLOOD PRESSURE MEASUREMENT

REACTIONS (11)
  - Influenza like illness [Recovered/Resolved]
  - Instillation site pain [Recovered/Resolved]
  - Headache [Not Recovered/Not Resolved]
  - Visual impairment [Recovered/Resolved]
  - Instillation site reaction [Recovered/Resolved]
  - Visual field defect [Recovered/Resolved]
  - Depressed mood [Unknown]
  - Panic attack [Unknown]
  - Photophobia [Unknown]
  - Vision blurred [Recovered/Resolved]
  - Excessive eye blinking [Recovered/Resolved]

NARRATIVE: CASE EVENT DATE: 2018
